FAERS Safety Report 5783070-8 (Version None)
Quarter: 2008Q2

REPORT INFORMATION
  Report Type: 
  Country: None (occurrence: None)
  Receive Date: 20080619
  Receipt Date: 20080611
  Transmission Date: 20081010
  Serious: Yes (Life-Threatening, Hospitalization)
  Sender: FDA-Public Use
  Company Number: GXKR2008GB05397

PATIENT
  Age: 65 Year
  Sex: Male

DRUGS (8)
  1. SIMVASTATIN [Suspect]
     Indication: MYOCARDIAL ISCHAEMIA
     Dosage: 40 MG, QD, ORAL
     Route: 048
     Dates: start: 20010101, end: 20080512
  2. FUSIDIC ACID [Suspect]
     Indication: ARTHRITIS BACTERIAL
     Dosage: 500 MG, TID, ORAL
     Route: 048
     Dates: start: 20080331, end: 20080512
  3. AMLODIPINE [Concomitant]
  4. ATENOLOL [Concomitant]
  5. BENDROFLUMETHIAZIDE (BENDROFLUMETHIAZIDE) [Concomitant]
  6. DOXAZOSIN (DOXAZOSIN) [Concomitant]
  7. FLOXACILLIN SODIUM [Concomitant]
  8. RAMIPRIL [Concomitant]

REACTIONS (5)
  - ASTHENIA [None]
  - DRUG INTERACTION [None]
  - HYPOXIA [None]
  - MYALGIA [None]
  - RHABDOMYOLYSIS [None]
